FAERS Safety Report 11030801 (Version 1)
Quarter: 2015Q2

REPORT INFORMATION
  Report Type: Spontaneous
  Country: US (occurrence: None)
  Receive Date: 20150414
  Receipt Date: 20150414
  Transmission Date: 20150821
  Serious: Yes (Other)
  Sender: FDA-Public Use
  Company Number: None

PATIENT
  Age: 72 Year
  Sex: Female
  Weight: 58.97 kg

DRUGS (7)
  1. HUMALOG MIX75/25 KWIKPEN [Suspect]
     Active Substance: INSULIN LISPRO
     Indication: TYPE 1 DIABETES MELLITUS
     Dates: start: 20150330, end: 20150407
  2. CLEAR LAX [Concomitant]
     Active Substance: POLYETHYLENE GLYCOL 3350
  3. BIOTIN [Concomitant]
     Active Substance: BIOTIN
  4. MAGNESIUM [Concomitant]
     Active Substance: MAGNESIUM
  5. CALCIUM CITRATE/D3 [Concomitant]
  6. NATURAL VEGATIVE LAXATIVE [Concomitant]
  7. VITAMIN C [Concomitant]
     Active Substance: ASCORBIC ACID

REACTIONS (6)
  - Peripheral swelling [None]
  - Heart rate increased [None]
  - Pain in extremity [None]
  - Reaction to preservatives [None]
  - Blood pressure increased [None]
  - Anxiety [None]

NARRATIVE: CASE EVENT DATE: 20150330
